FAERS Safety Report 9385963 (Version 4)
Quarter: 2013Q3

REPORT INFORMATION
  Report Type: Report from Study
  Country: NL (occurrence: NL)
  Receive Date: 20130705
  Receipt Date: 20130813
  Transmission Date: 20140515
  Serious: Yes (Other)
  Sender: FDA-Public Use
  Company Number: NL-ABBOTT-13P-114-1111542-00

PATIENT
  Age: 70 Year
  Sex: Male
  Weight: 76 kg

DRUGS (6)
  1. HUMIRA [Suspect]
     Indication: RHEUMATOID ARTHRITIS
     Route: 058
     Dates: start: 20130207
  2. IBUPROFEN [Concomitant]
     Indication: RHEUMATOID ARTHRITIS
     Dates: start: 20110303
  3. PLAQUENIL [Concomitant]
     Indication: RHEUMATOID ARTHRITIS
     Dates: start: 20110628
  4. SULFASALAZINE [Concomitant]
     Indication: RHEUMATOID ARTHRITIS
     Dates: start: 20121113
  5. LEVOTHYROXINE [Concomitant]
     Indication: HYPOTHYROIDISM
     Dates: start: 19970915
  6. OMEPRAZOL [Concomitant]
     Indication: ABDOMINAL DISCOMFORT
     Dates: start: 19990430

REACTIONS (1)
  - Tendon disorder [Not Recovered/Not Resolved]
